FAERS Safety Report 13948461 (Version 1)
Quarter: 2017Q3

REPORT INFORMATION
  Report Type: Spontaneous
  Country: US (occurrence: None)
  Receive Date: 20170907
  Receipt Date: 20170907
  Transmission Date: 20171128
  Serious: No
  Sender: FDA-Public Use
  Company Number: None

PATIENT
  Age: 71 Year
  Sex: Female

DRUGS (1)
  1. AFINITOR [Suspect]
     Active Substance: EVEROLIMUS
     Indication: MALAISE
     Route: 048
     Dates: start: 20170801, end: 20170831

REACTIONS (2)
  - Pruritus [None]
  - Swelling [None]

NARRATIVE: CASE EVENT DATE: 20170831
